FAERS Safety Report 10053093 (Version 2)
Quarter: 2014Q2

REPORT INFORMATION
  Report Type: Spontaneous
  Country: JP (occurrence: None)
  Receive Date: 20140331
  Receipt Date: 20140410
  Transmission Date: 20141212
  Serious: Yes (Death, Hospitalization)
  Sender: FDA-Public Use
  Company Number: JP-2014-0807

PATIENT
  Age: 34 Year
  Sex: Female
  Weight: 35 kg

DRUGS (7)
  1. VINORELBINE [Suspect]
     Indication: METASTATIC SQUAMOUS CELL CARCINOMA
     Dosage: 25 MG/M2, TOTAL DOSE 32 MG DAYS 1 AND 8 EVERY 3/4 WEEKS DURING 4-6 CYCLES; INTRAVENOUS
     Route: 042
     Dates: start: 20140117, end: 20140117
  2. CISPLATIN [Suspect]
     Indication: METASTATIC SQUAMOUS CELL CARCINOMA
     Dosage: 60 MG/M2, TOTAL DOSE 75 MG, DAY 1 EVERY 3-4 WEEKS FOR 4-6 CYCLES; INRAVENOUS
     Route: 042
     Dates: start: 20140117, end: 20140117
  3. CETUXIMAB [Suspect]
     Indication: METASTATIC SQUAMOUS CELL CARCINOMA
     Dosage: 250 MG/M2, TOTAL DOSE 320 MG WEEKLY EVERY 3/4 WEEKS DURING 406 CYCLES; INTRAVENOUS?
     Route: 042
  4. NAUZELIN (DOMPERIDONE) TABLET [Concomitant]
  5. NAUZELIN (DOMPERIDONE) SUPPOSITORY [Concomitant]
  6. ZYPREXA (OLANZAPINE) [Concomitant]
  7. DECADRON (DEXAMETHASONE ACETATE) [Concomitant]

REACTIONS (9)
  - Intestinal perforation [None]
  - Gastrointestinal necrosis [None]
  - Cardio-respiratory arrest [None]
  - White blood cell count decreased [None]
  - Malnutrition [None]
  - Decreased appetite [None]
  - Nausea [None]
  - Diarrhoea [None]
  - Hypophagia [None]
